FAERS Safety Report 5915358-1 (Version None)
Quarter: 2008Q4

REPORT INFORMATION
  Report Type: 
  Country: None (occurrence: None)
  Receive Date: 20081010
  Receipt Date: 20080929
  Transmission Date: 20090506
  Serious: Yes (Other)
  Sender: FDA-Public Use
  Company Number: ES-ROCHE-588679

PATIENT
  Age: 39 Year
  Sex: Female

DRUGS (1)
  1. ISOTRETINOIN [Suspect]
     Indication: ACNE
     Dosage: THE PATIENT TOOK ISOTRETINOIN  FOR 7 AND A HALF WEEK
     Route: 048

REACTIONS (12)
  - CHEILITIS [None]
  - CORNEAL DEFECT [None]
  - DRY EYE [None]
  - DRY SKIN [None]
  - ERYTHEMA [None]
  - EYELID OEDEMA [None]
  - LIP DRY [None]
  - LIP EXFOLIATION [None]
  - LIP SWELLING [None]
  - SKIN EXFOLIATION [None]
  - SWELLING FACE [None]
  - VISUAL ACUITY REDUCED [None]
